FAERS Safety Report 5313411-7 (Version None)
Quarter: 2007Q3

REPORT INFORMATION
  Report Type: 
  Country: None (occurrence: None)
  Receive Date: 20070501
  Receipt Date: 20070423
  Transmission Date: 20080115
  Serious: Yes (Hospitalization)
  Sender: FDA-Public Use
  Company Number: FR-BAYER-200611063BFR

PATIENT
  Age: 48 Year
  Sex: Male

DRUGS (12)
  1. MOXIFLOXACIN HCL [Suspect]
     Indication: PULMONARY TUBERCULOSIS
     Dosage: TOTAL DAILY DOSE: 800 MG  UNIT DOSE: 400 MG
     Route: 048
     Dates: start: 20060613, end: 20061007
  2. MOXIFLOXACIN HCL [Suspect]
     Dosage: TOTAL DAILY DOSE: 400 MG  UNIT DOSE: 400 MG
     Route: 048
     Dates: start: 20060520, end: 20060613
  3. PARA AMINOSALICYLIC ACID [Suspect]
     Indication: PULMONARY TUBERCULOSIS
     Dosage: TOTAL DAILY DOSE: 12 G
     Route: 048
     Dates: start: 20060613
  4. CYCLOSERINE [Suspect]
     Indication: PULMONARY TUBERCULOSIS
     Dosage: TOTAL DAILY DOSE: 1 G  UNIT DOSE: 250 MG
     Route: 048
     Dates: start: 20060613
  5. ZYVOX [Suspect]
     Indication: PULMONARY TUBERCULOSIS
     Dosage: TOTAL DAILY DOSE: 1200 MG  UNIT DOSE: 600 MG
     Route: 048
     Dates: start: 20060613, end: 20061006
  6. ETHIONAMIDE [Suspect]
     Indication: PULMONARY TUBERCULOSIS
     Dosage: TOTAL DAILY DOSE: 1 G  UNIT DOSE: 500 MG
     Route: 048
     Dates: start: 20060613, end: 20060811
  7. CAPREOMYCIN SULFATE [Suspect]
     Indication: PULMONARY TUBERCULOSIS
     Dosage: TOTAL DAILY DOSE: 1 G
     Route: 042
     Dates: start: 20060619, end: 20060801
  8. ETHAMBUTOL HYDROCHLORIDE [Concomitant]
     Indication: PULMONARY TUBERCULOSIS
     Dates: start: 20060520, end: 20060613
  9. RIMIFON [Concomitant]
     Indication: PULMONARY TUBERCULOSIS
     Dates: start: 20060520, end: 20060613
  10. PIRILENE [Concomitant]
     Indication: PULMONARY TUBERCULOSIS
     Dosage: TOTAL DAILY DOSE: 1 G  UNIT DOSE: 500 MG
     Dates: start: 20060520, end: 20060613
  11. AMIKACIN [Concomitant]
     Indication: PULMONARY TUBERCULOSIS
     Dosage: TOTAL DAILY DOSE: 1 G  UNIT DOSE: 500 MG
     Route: 030
     Dates: start: 20060520, end: 20060619
  12. AMIKACIN [Concomitant]
     Dosage: UNIT DOSE: 500 MG
     Route: 030
     Dates: start: 20060613, end: 20060619

REACTIONS (15)
  - ABDOMINAL PAIN [None]
  - ABDOMINAL PAIN UPPER [None]
  - ANAEMIA [None]
  - DEAFNESS NEUROSENSORY [None]
  - DYSPEPSIA [None]
  - HEPATIC FAILURE [None]
  - HYPOTHYROIDISM [None]
  - LACTIC ACIDOSIS [None]
  - NEUROPATHY [None]
  - PERICARDIAL EFFUSION [None]
  - PERICARDITIS TUBERCULOUS [None]
  - PERIPHERAL SENSORY NEUROPATHY [None]
  - PULMONARY HYPERTENSION [None]
  - VISUAL ACUITY REDUCED [None]
  - VOMITING [None]
